FAERS Safety Report 18321393 (Version 1)
Quarter: 2020Q3

REPORT INFORMATION
  Report Type: Spontaneous
  Country: US (occurrence: US)
  Receive Date: 20200928
  Receipt Date: 20200928
  Transmission Date: 20201103
  Serious: Yes (Hospitalization, Other)
  Sender: FDA-Public Use
  Company Number: US-PURDUE-USA-2020-0167817

PATIENT
  Age: 22 Year

DRUGS (4)
  1. OXYCONTIN [Suspect]
     Active Substance: OXYCODONE HYDROCHLORIDE
     Indication: PAIN
  2. OXYCODONE HYDROCHLORIDE (SIMILAR TO NDA 22?272) [Suspect]
     Active Substance: OXYCODONE HYDROCHLORIDE
     Indication: TOOTH IMPACTED
     Dosage: UNK
     Route: 048
  3. OXYCODONE HYDROCHLORIDE (SIMILAR TO NDA 22?272) [Suspect]
     Active Substance: OXYCODONE HYDROCHLORIDE
     Indication: SURGERY
  4. OXYCONTIN [Suspect]
     Active Substance: OXYCODONE HYDROCHLORIDE
     Indication: SURGERY
     Dosage: 5 MG, UNK
     Route: 048

REACTIONS (13)
  - Drug dependence [Unknown]
  - Abscess [Unknown]
  - Mental disorder [Unknown]
  - Drug abuse [Unknown]
  - Stress [Unknown]
  - Unevaluable event [Unknown]
  - Pain [Unknown]
  - Scar [Unknown]
  - Inflammation [Unknown]
  - Hospitalisation [Unknown]
  - Overdose [Unknown]
  - Emotional distress [Unknown]
  - Drug withdrawal syndrome [Unknown]

NARRATIVE: CASE EVENT DATE: 201103
